FAERS Safety Report 8575380 (Version 6)
Quarter: 2013Q2

REPORT INFORMATION
  Report Type: Spontaneous
  Country: US (occurrence: US)
  Receive Date: 20120523
  Receipt Date: 20130606
  Transmission Date: 20140414
  Serious: Yes (Hospitalization, Other)
  Sender: FDA-Public Use
  Company Number: US-ASTRAZENECA-2011SE66726

PATIENT
  Age: 22572 Day
  Sex: Female

DRUGS (8)
  1. ZOMIG [Suspect]
     Indication: HEADACHE
     Route: 048
  2. ZOMIG [Suspect]
     Indication: MIGRAINE
     Route: 048
  3. ZOMIG [Suspect]
     Indication: HEADACHE
     Dosage: UNKNOWN DOSE AS REQUIRED
     Route: 048
  4. ZOMIG [Suspect]
     Indication: MIGRAINE
     Dosage: UNKNOWN DOSE AS REQUIRED
     Route: 048
  5. ZOMIG [Suspect]
     Indication: HEADACHE
     Route: 048
  6. ZOMIG [Suspect]
     Indication: MIGRAINE
     Route: 048
  7. CRESTOR [Suspect]
     Route: 048
  8. IMITREX [Concomitant]

REACTIONS (12)
  - Migraine [Recovered/Resolved]
  - Road traffic accident [Unknown]
  - Malaise [Unknown]
  - Arthritis [Unknown]
  - Stress [Unknown]
  - Depression [Unknown]
  - Arthralgia [Unknown]
  - Blood cholesterol increased [Unknown]
  - Fatigue [Unknown]
  - Headache [Recovered/Resolved]
  - Drug ineffective [Unknown]
  - Drug dose omission [Unknown]
